FAERS Safety Report 24856349 (Version 1)
Quarter: 2025Q1

REPORT INFORMATION
  Report Type: Report from Study
  Country: CA (occurrence: CA)
  Receive Date: 20250117
  Receipt Date: 20250117
  Transmission Date: 20250409
  Serious: Yes (Other)
  Sender: ABBVIE
  Company Number: CA-ABBVIE-6088920

PATIENT
  Sex: Male

DRUGS (1)
  1. RINVOQ [Suspect]
     Active Substance: UPADACITINIB
     Indication: Colitis ulcerative
     Dosage: 1TABLET(=45MG)?ONCE DAILY FOR?8WEEKS THEN?DECREASE TO 30MG?ONCE DAILY
     Route: 048
     Dates: start: 20241220

REACTIONS (2)
  - Pyoderma gangrenosum [Unknown]
  - Swelling face [Recovering/Resolving]
